FAERS Safety Report 4869639-3 (Version None)
Quarter: 2005Q4

REPORT INFORMATION
  Report Type: 
  Country: None (occurrence: None)
  Receive Date: 20051227
  Receipt Date: 20051220
  Transmission Date: 20060501
  Serious: Yes (Other)
  Sender: FDA-Public Use
  Company Number: HQWYE109621DEC05

PATIENT
  Age: 16 Year
  Sex: Female

DRUGS (1)
  1. CLIMAREST PLUS (CONJUGATED ESTROGENS/MEDROXYPROGESTERONE ACETATE, TABL [Suspect]
     Indication: BODY HEIGHT ABOVE NORMAL
     Dosage: 7.5MG CONJUGATED ESTROGENS/5 MG MEDROGESTIN11DAYS ORAL
     Route: 048

REACTIONS (6)
  - BLOOD CHOLESTEROL INCREASED [None]
  - COAGULATION FACTOR VIII LEVEL INCREASED [None]
  - ILIAC ARTERY THROMBOSIS [None]
  - PULMONARY ARTERY THROMBOSIS [None]
  - VENA CAVA THROMBOSIS [None]
  - WEIGHT INCREASED [None]
